FAERS Safety Report 18274718 (Version 1)
Quarter: 2020Q3

REPORT INFORMATION
  Report Type: Spontaneous
  Country: US (occurrence: US)
  Receive Date: 20200916
  Receipt Date: 20200916
  Transmission Date: 20201103
  Serious: No
  Sender: FDA-Public Use
  Company Number: US-ABBVIE-20K-163-3468159-00

PATIENT
  Sex: Female

DRUGS (1)
  1. RINVOQ [Suspect]
     Active Substance: UPADACITINIB
     Indication: COLITIS ULCERATIVE
     Route: 048
     Dates: start: 2017

REACTIONS (3)
  - Arthralgia [Unknown]
  - Headache [Not Recovered/Not Resolved]
  - Abdominal pain upper [Unknown]
